FAERS Safety Report 24825172 (Version 1)
Quarter: 2025Q1

REPORT INFORMATION
  Report Type: Spontaneous
  Country: US (occurrence: None)
  Receive Date: 20250109
  Receipt Date: 20250109
  Transmission Date: 20250408
  Serious: Yes (Disabling, Other)
  Sender: FDA-CTU
  Company Number: None

PATIENT
  Age: 36 Year
  Sex: Male
  Weight: 60.75 kg

DRUGS (5)
  1. BENZONATATE [Suspect]
     Active Substance: BENZONATATE
     Indication: Cough
     Dosage: 1 CAPSULE 3 TIMES A DAY ORAL ?
     Route: 048
     Dates: start: 20250103, end: 20250104
  2. ALBUTEROL [Concomitant]
     Active Substance: ALBUTEROL
  3. CANNABIS SATIVA SUBSP. INDICA TOP [Concomitant]
     Active Substance: CANNABIS SATIVA SUBSP. INDICA TOP
  4. VITAMIN D [Concomitant]
     Active Substance: VITAMIN D NOS
  5. LOPERAMIDE [Concomitant]
     Active Substance: LOPERAMIDE

REACTIONS (2)
  - Drug ineffective [None]
  - Stress urinary incontinence [None]

NARRATIVE: CASE EVENT DATE: 20250104
